APPROVED DRUG PRODUCT: GANITE
Active Ingredient: GALLIUM NITRATE
Strength: 25MG/ML **Federal Register determination that product was not discontinued or withdrawn for safety or effectiveness reasons**
Dosage Form/Route: INJECTABLE;INJECTION
Application: N019961 | Product #002
Applicant: CHAPTER 7 TRUSTEE OF GENTA INC
Approved: Jan 17, 1991 | RLD: No | RS: No | Type: DISCN